FAERS Safety Report 7088534-5 (Version None)
Quarter: 2010Q4

REPORT INFORMATION
  Report Type: 
  Country: None (occurrence: None)
  Receive Date: 20101108
  Receipt Date: 20101029
  Transmission Date: 20110411
  Serious: Yes (Hospitalization)
  Sender: FDA-Public Use
  Company Number: JP-PFIZER INC-2010141168

PATIENT
  Age: 75 Year
  Sex: Male

DRUGS (1)
  1. ESTRACYT [Suspect]
     Dosage: 626.8 MG/DAY UNTIL SECOND WEEK OF OCT2010
     Route: 048
     Dates: end: 20101001

REACTIONS (1)
  - EMBOLISM ARTERIAL [None]
